FAERS Safety Report 8376204-2 (Version None)
Quarter: 2012Q2

REPORT INFORMATION
  Report Type: 
  Country: None (occurrence: None)
  Receive Date: 20120522
  Receipt Date: 20120516
  Transmission Date: 20120825
  Serious: Yes (Hospitalization)
  Sender: FDA-Public Use
  Company Number: US-BAYER-2012-049379

PATIENT
  Age: 51 Year
  Sex: Female

DRUGS (9)
  1. CYMBALTA [Concomitant]
     Dosage: 20 MG, UNK
     Route: 048
     Dates: start: 20110701
  2. DROSPIRENONE AND ETHINYL ESTRADIOL [Suspect]
  3. VITAMIN B12 NOS [Concomitant]
     Dosage: UNK
     Route: 030
     Dates: start: 20110701
  4. BETAMETHASONE DIPROPIONATE [Concomitant]
     Dosage: 0.05 %, UNK
     Route: 061
     Dates: start: 20110701
  5. AMBIEN [Concomitant]
     Dosage: 10 MG, UNK
     Route: 048
     Dates: start: 20110715
  6. YAZ [Suspect]
     Indication: MENOPAUSAL SYMPTOMS
  7. CIPROFLOXACIN [Concomitant]
     Dosage: 250 MG, UNK
     Route: 048
     Dates: start: 20110421
  8. TENORETIC 100 [Concomitant]
     Dosage: 50 MG, UNK
     Route: 048
     Dates: start: 20110701
  9. TENORETIC 100 [Concomitant]
     Dosage: 25 MG, UNK
     Route: 048
     Dates: start: 20110701

REACTIONS (1)
  - INTRACRANIAL VENOUS SINUS THROMBOSIS [None]
